FAERS Safety Report 11700697 (Version 1)
Quarter: 2015Q4

REPORT INFORMATION
  Report Type: Spontaneous
  Country: CN (occurrence: CN)
  Receive Date: 20151105
  Receipt Date: 20151105
  Transmission Date: 20160304
  Serious: Yes (Hospitalization)
  Sender: FDA-Public Use
  Company Number: CN-ROCHE-1656609

PATIENT
  Age: 29 Year
  Sex: Male

DRUGS (2)
  1. SODIUM CHLORIDE. [Concomitant]
     Active Substance: SODIUM CHLORIDE
     Route: 037
  2. CEFTRIAXONE. [Suspect]
     Active Substance: CEFTRIAXONE
     Indication: CENTRAL NERVOUS SYSTEM INFECTION
     Dosage: 1 G WAS DILUTED IN 0.9% SODIUM CHLORIDE INJECTION 5 ML
     Route: 037

REACTIONS (2)
  - Hypoaesthesia [Recovered/Resolved]
  - Seizure [Recovered/Resolved]
